FAERS Safety Report 8522726-0 (Version None)
Quarter: 2012Q3

REPORT INFORMATION
  Report Type: 
  Country: None (occurrence: None)
  Receive Date: 20120719
  Receipt Date: 20120716
  Transmission Date: 20120928
  Serious: Yes (Hospitalization, Other)
  Sender: FDA-Public Use
  Company Number: FR-GLAXOSMITHKLINE-B0815151A

PATIENT
  Sex: Female

DRUGS (12)
  1. LANTUS [Concomitant]
     Indication: TYPE 1 DIABETES MELLITUS
     Dosage: 46IU PER DAY
     Route: 058
  2. FLUTICASONE PROPIONATE/SALMETEROL [Concomitant]
     Route: 055
  3. NICORANDIL [Concomitant]
     Indication: MYOCARDIAL ISCHAEMIA
     Dosage: 20MG TWICE PER DAY
     Route: 048
     Dates: end: 20120209
  4. VALSARTAN [Concomitant]
  5. FUROSEMIDE [Concomitant]
     Dosage: 40MG PER DAY
     Route: 048
  6. RYTHMOL [Suspect]
     Indication: ATRIAL FIBRILLATION
     Dosage: 300MG PER DAY
     Route: 048
  7. PANTOPRAZOLE [Concomitant]
  8. CLOPIDOGREL [Suspect]
     Indication: MITRAL VALVE REPLACEMENT
     Dosage: 75MEQ PER DAY
     Route: 048
  9. LEXOMIL [Concomitant]
     Dosage: .25UD PER DAY
     Route: 048
  10. VENTOLIN [Concomitant]
  11. ATORVASTATIN [Suspect]
     Indication: PRODUCT USED FOR UNKNOWN INDICATION
     Dosage: 20MG PER DAY
     Route: 065
  12. COUMADIN [Suspect]
     Indication: MITRAL VALVE REPLACEMENT
     Dosage: .5UD PER DAY
     Route: 048
     Dates: end: 20120419

REACTIONS (5)
  - MELAENA [None]
  - RED BLOOD CELL COUNT DECREASED [None]
  - INTERNATIONAL NORMALISED RATIO ABNORMAL [None]
  - RECTAL HAEMORRHAGE [None]
  - INTESTINAL POLYP [None]
